FAERS Safety Report 4771723-X (Version None)
Quarter: 2005Q3

REPORT INFORMATION
  Report Type: 
  Country: None (occurrence: None)
  Receive Date: 20050916
  Receipt Date: 20050805
  Transmission Date: 20060218
  Serious: Yes (Other)
  Sender: FDA-Public Use
  Company Number: JP-ROCHE-413507

PATIENT
  Age: 59 Year
  Sex: Male

DRUGS (7)
  1. PEG-INTERFERON A-2A (RO 25-8310) [Suspect]
     Route: 058
     Dates: start: 20040301, end: 20050126
  2. LANDEL [Concomitant]
     Dosage: TRADE NAME: LANDEL 10_20.
     Route: 048
  3. GOKUMISIN [Concomitant]
     Dosage: ORAL FORMULATION.
     Route: 048
  4. GASTER (JAPAN) [Concomitant]
     Dosage: ORAL FORMULATION. DOSE INCREASED.
     Route: 048
  5. ALOSENN [Concomitant]
     Route: 048
  6. NEO-MINOPHAGEN C [Concomitant]
     Route: 042
     Dates: start: 20050420
  7. UNSPECIFIED DRUG [Concomitant]
     Dosage: REPORTED AS: LIVERES.
     Route: 042
     Dates: start: 20040809, end: 20041006

REACTIONS (4)
  - PLATELET COUNT DECREASED [None]
  - RETINAL DEPIGMENTATION [None]
  - TRANSAMINASES INCREASED [None]
  - WHITE BLOOD CELL COUNT DECREASED [None]
